FAERS Safety Report 9497657 (Version 2)
Quarter: 2013Q3

REPORT INFORMATION
  Report Type: Spontaneous
  Country: DK (occurrence: None)
  Receive Date: 20130830
  Receipt Date: 20130910
  Transmission Date: 20140515
  Serious: Yes (Other)
  Sender: FDA-Public Use
  Company Number: 1867443

PATIENT
  Sex: Female

DRUGS (6)
  1. EPIRUBICIN HYDROCHLORIDE [Suspect]
     Indication: INVASIVE LOBULAR BREAST CARCINOMA
     Dosage: MAXIMUM DOSE ADMINISTERED. 15?CEF TREATMENTS ADMINISTERED IN TOTAL.
     Dates: end: 20030522
  2. CYCLOPHOSPHAMIDE [Concomitant]
  3. FLUOROURACIL [Concomitant]
  4. ANASTROZOL [Concomitant]
  5. EXEMESTAN [Concomitant]
  6. LETROZOL [Concomitant]

REACTIONS (6)
  - Impaired work ability [None]
  - Quality of life decreased [None]
  - Mobility decreased [None]
  - Cardiac failure [None]
  - Pain [None]
  - Gastric disorder [None]
